FAERS Safety Report 19837706 (Version 1)
Quarter: 2021Q3

REPORT INFORMATION
  Report Type: Spontaneous
  Country: US (occurrence: US)
  Receive Date: 20210914
  Receipt Date: 20210914
  Transmission Date: 20211014
  Serious: No
  Sender: FDA-Public Use
  Company Number: None

PATIENT
  Age: 62 Year
  Sex: Female
  Weight: 73 kg

DRUGS (1)
  1. APIXABAN (APIXABAN 5MG TAB, UD) [Suspect]
     Active Substance: APIXABAN
     Indication: ATRIAL FIBRILLATION
     Route: 048
     Dates: start: 20210426, end: 20210502

REACTIONS (4)
  - Intraventricular haemorrhage [None]
  - Pericardial effusion [None]
  - Haemorrhage intracranial [None]
  - Acute kidney injury [None]

NARRATIVE: CASE EVENT DATE: 20210505
